FAERS Safety Report 18441368 (Version 1)
Quarter: 2020Q4

REPORT INFORMATION
  Report Type: Spontaneous
  Country: CO (occurrence: CO)
  Receive Date: 20201029
  Receipt Date: 20201029
  Transmission Date: 20210114
  Serious: Yes (Other)
  Sender: FDA-Public Use
  Company Number: CO-BIOMARINAP-CO-2020-132828

PATIENT
  Sex: Male
  Weight: 34 kg

DRUGS (1)
  1. VIMIZIM [Suspect]
     Active Substance: ELOSULFASE ALFA
     Indication: MUCOPOLYSACCHARIDOSIS IV
     Dosage: UNK
     Route: 042
     Dates: start: 20160616

REACTIONS (2)
  - Hypokalaemia [Unknown]
  - Tracheostomy malfunction [Unknown]

NARRATIVE: CASE EVENT DATE: 202006
